FAERS Safety Report 19130061 (Version 1)
Quarter: 2021Q2

REPORT INFORMATION
  Report Type: Report from Study
  Country: None (occurrence: US)
  Receive Date: 20210414
  Receipt Date: 20210414
  Transmission Date: 20210717
  Serious: Yes (Hospitalization)
  Sender: FDA-Public Use
  Company Number: US-ABBVIE-21K-163-3831321-00

PATIENT
  Sex: Female
  Weight: 63.11 kg

DRUGS (3)
  1. SKYRIZI [Suspect]
     Active Substance: RISANKIZUMAB-RZAA
     Dosage: 2 SYRINGE WEEK 4
     Route: 058
  2. HUMIRA [Suspect]
     Active Substance: ADALIMUMAB
     Indication: PRODUCT USED FOR UNKNOWN INDICATION
     Route: 058
     Dates: start: 2003
  3. SKYRIZI [Suspect]
     Active Substance: RISANKIZUMAB-RZAA
     Indication: PSORIASIS
     Dosage: 2 SYRINGE WEEK 0
     Route: 058

REACTIONS (11)
  - Regurgitation [Recovered/Resolved]
  - Dyspepsia [Recovered/Resolved]
  - Confusional state [Unknown]
  - Fracture [Unknown]
  - Viral load [Unknown]
  - Intestinal obstruction [Recovered/Resolved]
  - Cold sweat [Recovered/Resolved]
  - Osteoarthritis [Unknown]
  - Hip arthroplasty [Unknown]
  - Hip arthroplasty [Unknown]
  - Nasopharyngitis [Recovered/Resolved]

NARRATIVE: CASE EVENT DATE: 2008
